FAERS Safety Report 11012557 (Version 1)
Quarter: 2015Q2

REPORT INFORMATION
  Report Type: Spontaneous
  Country: US (occurrence: None)
  Receive Date: 20150410
  Receipt Date: 20150410
  Transmission Date: 20150821
  Serious: No
  Sender: FDA-Public Use
  Company Number: None

PATIENT
  Age: 27 Year
  Sex: Female
  Weight: 61.24 kg

DRUGS (8)
  1. ZYRTEC [Concomitant]
     Active Substance: CETIRIZINE HYDROCHLORIDE
  2. BIOTIN [Concomitant]
     Active Substance: BIOTIN
  3. VITAMIN D [Concomitant]
     Active Substance: CHOLECALCIFEROL
  4. ALBUTEROL. [Concomitant]
     Active Substance: ALBUTEROL
  5. OCELLA [Concomitant]
     Active Substance: DROSPIRENONE\ETHINYL ESTRADIOL
  6. SUDAFED [Concomitant]
     Active Substance: PSEUDOEPHEDRINE HYDROCHLORIDE
  7. DIGESTIVE ADVANTAGE LACTOSE DEFENSE [Concomitant]
  8. NASACORT [Suspect]
     Active Substance: TRIAMCINOLONE ACETONIDE
     Indication: MULTIPLE ALLERGIES
     Dosage: ONE SPRAY IN EACH NOSTRIL ONCE DAILY INHALATION
     Route: 055
     Dates: start: 20140921, end: 20150103

REACTIONS (2)
  - Weight increased [None]
  - Hot flush [None]

NARRATIVE: CASE EVENT DATE: 20141222
